FAERS Safety Report 7746420-9 (Version None)
Quarter: 2011Q3

REPORT INFORMATION
  Report Type: 
  Country: None (occurrence: None)
  Receive Date: 20110913
  Receipt Date: 20110913
  Transmission Date: 20111222
  Serious: Yes (Other)
  Sender: FDA-Public Use
  Company Number: None

PATIENT
  Age: 28 Year
  Sex: Male
  Weight: 90.718 kg

DRUGS (1)
  1. CHANTIX [Suspect]

REACTIONS (6)
  - HALLUCINATION [None]
  - FALL [None]
  - MENTAL DISORDER [None]
  - SOMNAMBULISM [None]
  - ABNORMAL SLEEP-RELATED EVENT [None]
  - SLEEP TALKING [None]
